FAERS Safety Report 22321279 (Version 1)
Quarter: 2023Q2

REPORT INFORMATION
  Report Type: Spontaneous
  Country: US (occurrence: US)
  Receive Date: 20230515
  Receipt Date: 20230515
  Transmission Date: 20230721
  Serious: No
  Sender: FDA-Public Use
  Company Number: US-009507513-2305USA003793

PATIENT

DRUGS (3)
  1. WELIREG [Suspect]
     Active Substance: BELZUTIFAN
     Indication: Acquired gene mutation
     Route: 048
  2. WELIREG [Suspect]
     Active Substance: BELZUTIFAN
     Indication: Renal cell carcinoma
  3. WELIREG [Suspect]
     Active Substance: BELZUTIFAN
     Indication: Von Hippel-Lindau disease

REACTIONS (3)
  - Off label use [Unknown]
  - Drug effective for unapproved indication [Unknown]
  - No adverse event [Unknown]
